FAERS Safety Report 6769765-8 (Version None)
Quarter: 2010Q2

REPORT INFORMATION
  Report Type: 
  Country: None (occurrence: None)
  Receive Date: 20100615
  Receipt Date: 20100607
  Transmission Date: 20101027
  Serious: Yes (Hospitalization)
  Sender: FDA-Public Use
  Company Number: AU-ROCHE-708108

PATIENT
  Age: 72 Year
  Sex: Female

DRUGS (7)
  1. CAPECITABINE [Suspect]
     Indication: COLON CANCER STAGE III
     Route: 048
  2. SERTRALINE HCL [Concomitant]
  3. CLOPIDOGREL [Concomitant]
  4. ASPIRIN [Concomitant]
  5. IRBESARTAN [Concomitant]
  6. METOPROLOL TARTRATE [Concomitant]
  7. AMLODIPINE [Concomitant]

REACTIONS (1)
  - TORSADE DE POINTES [None]
